FAERS Safety Report 17574033 (Version 11)
Quarter: 2020Q3

REPORT INFORMATION
  Report Type: Spontaneous
  Country: US (occurrence: US)
  Receive Date: 20200323
  Receipt Date: 20200821
  Transmission Date: 20201102
  Serious: Yes (Hospitalization, Other)
  Sender: FDA-Public Use
  Company Number: US-ACTELION-A-US2020-203234

PATIENT
  Sex: Female
  Weight: 70.3 kg

DRUGS (8)
  1. VELETRI [Suspect]
     Active Substance: EPOPROSTENOL
     Dosage: 10 NG/KG, PER MIN
     Route: 042
     Dates: start: 20200501
  2. SILDENAFIL. [Concomitant]
     Active Substance: SILDENAFIL
  3. VELETRI [Suspect]
     Active Substance: EPOPROSTENOL
     Indication: PULMONARY ARTERIAL HYPERTENSION
     Dosage: 20 NG/KG, PER MIN
     Route: 042
  4. VELETRI [Suspect]
     Active Substance: EPOPROSTENOL
     Dosage: 13 NG/KG, PER MIN
     Route: 042
  5. VELETRI [Suspect]
     Active Substance: EPOPROSTENOL
     Dosage: 14 NG/KG, PER MIN
     Route: 042
  6. VELETRI [Suspect]
     Active Substance: EPOPROSTENOL
     Dosage: 18 NG/KG, PER MIN
     Route: 042
  7. VELETRI [Suspect]
     Active Substance: EPOPROSTENOL
     Dosage: 1.5 MG
     Route: 042
     Dates: start: 20180607
  8. AMBRISENTAN [Suspect]
     Active Substance: AMBRISENTAN
     Indication: PULMONARY ARTERIAL HYPERTENSION
     Dosage: 10 MG, QD
     Route: 048
     Dates: start: 20180512

REACTIONS (29)
  - Bacteraemia [Unknown]
  - Chest pain [Not Recovered/Not Resolved]
  - Skin irritation [Not Recovered/Not Resolved]
  - Vomiting [Unknown]
  - Cardiac disorder [Unknown]
  - Flushing [Not Recovered/Not Resolved]
  - Weight decreased [Unknown]
  - Heart rate increased [Unknown]
  - Dyspnoea [Recovering/Resolving]
  - Abdominal discomfort [Recovering/Resolving]
  - Erythema [Unknown]
  - Pyrexia [Unknown]
  - Hyperhidrosis [Unknown]
  - Complication associated with device [Recovered/Resolved]
  - Device connection issue [Unknown]
  - Pain in jaw [Unknown]
  - Nausea [Recovering/Resolving]
  - Hypersensitivity [Not Recovered/Not Resolved]
  - Headache [Not Recovered/Not Resolved]
  - Diarrhoea [Unknown]
  - Vascular device infection [Unknown]
  - Anxiety [Unknown]
  - Pain [Unknown]
  - Blister [Unknown]
  - Catheter site swelling [Unknown]
  - Cardiac failure congestive [Unknown]
  - Stress [Unknown]
  - Catheter site erythema [Unknown]
  - Catheter site vesicles [Unknown]
